FAERS Safety Report 5832152-0 (Version None)
Quarter: 2008Q3

REPORT INFORMATION
  Report Type: 
  Country: None (occurrence: None)
  Receive Date: 20080731
  Receipt Date: 20080731
  Transmission Date: 20090109
  Serious: No
  Sender: FDA-Public Use
  Company Number: None

PATIENT
  Age: 20 Year
  Sex: Female
  Weight: 52.1637 kg

DRUGS (2)
  1. CYMBALTA [Suspect]
     Indication: NEURALGIA
     Dosage: 30 MG. ONCE DAILY PO
     Route: 048
     Dates: start: 20080705, end: 20080709
  2. CYMBALTA [Suspect]
     Indication: PAIN IN EXTREMITY
     Dosage: 30 MG. ONCE DAILY PO
     Route: 048
     Dates: start: 20080705, end: 20080709

REACTIONS (5)
  - MYDRIASIS [None]
  - NAUSEA [None]
  - PUPILLARY REFLEX IMPAIRED [None]
  - VISUAL IMPAIRMENT [None]
  - VOMITING [None]
